FAERS Safety Report 9122612 (Version 1)
Quarter: 2013Q1

REPORT INFORMATION
  Report Type: Spontaneous
  Country: US (occurrence: US)
  Receive Date: 20130115
  Receipt Date: 20130115
  Transmission Date: 20140127
  Serious: Yes (Hospitalization)
  Sender: FDA-Public Use
  Company Number: US-BAYER-2013-004496

PATIENT
  Age: 31 Year
  Sex: Female
  Weight: 104 kg

DRUGS (7)
  1. YAZ [Suspect]
  2. YASMIN [Suspect]
  3. ORAL CONTRACEPTIVE NOS [Concomitant]
  4. INDOMYCIN [Concomitant]
     Dosage: UNK
     Dates: start: 20040112
  5. INDOCIN [Concomitant]
     Dosage: UNK
     Dates: start: 20040112
  6. NAPROXEN [Concomitant]
     Dosage: UNK
     Dates: start: 20040112
  7. ALBUTEROL [Concomitant]
     Dosage: UNK
     Dates: start: 20040112

REACTIONS (2)
  - Pulmonary embolism [None]
  - Deep vein thrombosis [None]
